FAERS Safety Report 10050925 (Version 1)
Quarter: 2014Q2

REPORT INFORMATION
  Report Type: Spontaneous
  Country: US (occurrence: US)
  Receive Date: 20140401
  Receipt Date: 20140401
  Transmission Date: 20141212
  Serious: Yes (Other)
  Sender: FDA-Public Use
  Company Number: US-GLAXOSMITHKLINE-A1066713A

PATIENT
  Age: 59 Year
  Sex: Female

DRUGS (2)
  1. VENTOLIN [Suspect]
     Indication: ASTHMA
     Route: 055
     Dates: start: 2006
  2. ALBUTEROL NEBULIZER [Concomitant]

REACTIONS (4)
  - Respiratory tract infection [Unknown]
  - Pleurisy [Unknown]
  - Malaise [Unknown]
  - Dyspnoea [Unknown]
